FAERS Safety Report 6762856-7 (Version None)
Quarter: 2010Q2

REPORT INFORMATION
  Report Type: 
  Country: None (occurrence: None)
  Receive Date: 20100609
  Receipt Date: 20100528
  Transmission Date: 20101027
  Serious: Yes (Hospitalization)
  Sender: FDA-Public Use
  Company Number: DE-PFIZER INC-2006095937

PATIENT
  Age: 75 Year
  Sex: Female
  Weight: 85 kg

DRUGS (11)
  1. SUNITINIB MALATE [Suspect]
     Indication: METASTATIC RENAL CELL CARCINOMA
     Dosage: 50 MG, 1X/DAY
     Route: 048
     Dates: start: 20060301, end: 20060731
  2. FERROUS SULFATE TAB [Concomitant]
     Dosage: UNK
     Route: 048
  3. ALLOPURINOL [Concomitant]
     Dosage: UNK
     Route: 048
  4. LOPERAMIDE [Concomitant]
     Dosage: UNK
     Route: 048
     Dates: start: 20060623
  5. METOPROLOL SUCCINATE [Concomitant]
     Dosage: UNK
     Route: 048
     Dates: start: 20060801
  6. LEVOTHYROXINE SODIUM [Concomitant]
     Dosage: UNK
     Route: 048
  7. NORVASC [Concomitant]
     Dosage: UNK
     Route: 048
     Dates: start: 20060801
  8. DIMENHYDRINATE [Concomitant]
     Dosage: UNK
     Route: 048
     Dates: start: 20060801
  9. DIPYRONE TAB [Concomitant]
     Dosage: UNK
     Route: 048
     Dates: start: 20060801
  10. EMBOLEX [Concomitant]
     Dosage: UNK
     Route: 058
     Dates: start: 20060801
  11. TRIAMTERENE AND HYDROCHLOROTHIAZIDE [Concomitant]
     Dosage: UNK
     Route: 048

REACTIONS (1)
  - HEPATITIS [None]
